FAERS Safety Report 10362760 (Version 1)
Quarter: 2014Q3

REPORT INFORMATION
  Report Type: Spontaneous
  Country: US (occurrence: None)
  Receive Date: 20140730
  Receipt Date: 20140730
  Transmission Date: 20150326
  Serious: Yes (Death)
  Sender: FDA-Public Use
  Company Number: 1713747-2013-99908

PATIENT
  Age: 68 Year
  Sex: Female
  Weight: 76.7 kg

DRUGS (9)
  1. LEVOTHYROXIN [Concomitant]
     Active Substance: LEVOTHYROXINE
  2. HYDRALAZINE [Concomitant]
     Active Substance: HYDRALAZINE HYDROCHLORIDE
  3. NATURALYTE [Concomitant]
     Active Substance: ACETIC ACID\SODIUM ACETATE
  4. FESENIUS [Concomitant]
  5. 0.09% SODIUM CHLORIDE INJECTION, USP [Suspect]
     Active Substance: SODIUM CHLORIDE
     Indication: HAEMODIALYSIS
     Dates: start: 20130508
  6. NOVOLIN [Concomitant]
     Active Substance: INSULIN HUMAN
  7. OPTIFLUX DIALYZER [Concomitant]
  8. MVI [Concomitant]
     Active Substance: VITAMINS
  9. FRESENIUS COMBISET [Concomitant]

REACTIONS (7)
  - Chills [None]
  - Unresponsive to stimuli [None]
  - Procedural complication [None]
  - Ventricular fibrillation [None]
  - Apnoea [None]
  - Stenotrophomonas test positive [None]
  - Tachycardia [None]

NARRATIVE: CASE EVENT DATE: 20130508
